FAERS Safety Report 5926676-5 (Version None)
Quarter: 2008Q4

REPORT INFORMATION
  Report Type: 
  Country: None (occurrence: None)
  Receive Date: 20081017
  Receipt Date: 20081009
  Transmission Date: 20090506
  Serious: Yes (Death)
  Sender: FDA-Public Use
  Company Number: 20391

PATIENT
  Sex: Male

DRUGS (7)
  1. VINCRISTINE [Suspect]
     Dates: start: 20060201, end: 20060421
  2. ZEVALIN [Suspect]
     Dates: start: 20050407
  3. BEVACIZUMAB [Suspect]
     Dosage: 200 MG/KG
     Dates: start: 20050331
  4. CYCLOPHOSPHAMIDE [Suspect]
     Dates: start: 20060201, end: 20060421
  5. PREDNISOLONE [Suspect]
     Dates: start: 20060201, end: 20060421
  6. RITUXIMAB [Suspect]
     Dates: start: 20050331
  7. CHLORAMBUCIL [Concomitant]

REACTIONS (1)
  - ACUTE MYELOID LEUKAEMIA [None]
